FAERS Safety Report 11112480 (Version 1)
Quarter: 2015Q2

REPORT INFORMATION
  Report Type: Spontaneous
  Country: US (occurrence: None)
  Receive Date: 20150505
  Receipt Date: 20150505
  Transmission Date: 20150821
  Serious: Yes (Hospitalization)
  Sender: FDA-Public Use
  Company Number: CC400221721

PATIENT
  Age: 13 Year
  Sex: Male
  Weight: 38.4 kg

DRUGS (1)
  1. CEFTRIAXONE 2 G B. BRAUN MEDICAL [Suspect]
     Active Substance: CEFTRIAXONE
     Indication: PYREXIA
     Dosage: 2G, INTRAVENOUS
     Route: 042
     Dates: start: 20140606

REACTIONS (5)
  - Drooling [None]
  - Pruritus [None]
  - Dysphagia [None]
  - Urticaria [None]
  - Dysphonia [None]

NARRATIVE: CASE EVENT DATE: 20140606
